FAERS Safety Report 5217989-3 (Version None)
Quarter: 2007Q1

REPORT INFORMATION
  Report Type: 
  Country: None (occurrence: None)
  Receive Date: 20061130
  Receipt Date: 20060807
  Transmission Date: 20070707
  Serious: Yes (Hospitalization)
  Sender: FDA-Public Use
  Company Number: US200607001082

PATIENT
  Age: 43 Year
  Sex: Male
  Weight: 71.2 kg

DRUGS (1)
  1. ZYPREXA [Suspect]
     Dates: start: 20020101, end: 20060225

REACTIONS (3)
  - ANXIETY [None]
  - DIABETES MELLITUS [None]
  - MAJOR DEPRESSION [None]
